FAERS Safety Report 19103761 (Version 4)
Quarter: 2021Q2

REPORT INFORMATION
  Report Type: Report from Study
  Country: US (occurrence: US)
  Receive Date: 20210407
  Receipt Date: 20210618
  Transmission Date: 20210717
  Serious: Yes (Other)
  Sender: FDA-Public Use
  Company Number: NVSC2021US071405

PATIENT
  Sex: Female

DRUGS (2)
  1. COSENTYX [Suspect]
     Active Substance: SECUKINUMAB
     Indication: ANKYLOSING SPONDYLITIS
     Dosage: 150 MG/KG, QW
     Route: 058
  2. REMICADE [Suspect]
     Active Substance: INFLIXIMAB
     Indication: PRODUCT USED FOR UNKNOWN INDICATION
     Dosage: UNK UNK, UNKNOWN
     Route: 065

REACTIONS (15)
  - Back pain [Unknown]
  - Sinus disorder [Unknown]
  - Abscess [Unknown]
  - Sinus congestion [Unknown]
  - Pruritus [Unknown]
  - Lupus-like syndrome [Unknown]
  - Pain [Unknown]
  - Macule [Unknown]
  - Arthralgia [Unknown]
  - Product dose omission issue [Unknown]
  - Middle ear effusion [Unknown]
  - Ankylosing spondylitis [Unknown]
  - Lymphadenopathy [Unknown]
  - Eye disorder [Unknown]
  - Burning sensation [Unknown]
